FAERS Safety Report 9817916 (Version 13)
Quarter: 2016Q4

REPORT INFORMATION
  Report Type: Report from Study
  Country: CA (occurrence: CA)
  Receive Date: 20140115
  Receipt Date: 20161031
  Transmission Date: 20170207
  Serious: Yes (Death, Hospitalization, Other)
  Sender: FDA-Public Use
  Company Number: PHHY2013CA152989

PATIENT
  Age: 75 Year
  Sex: Female

DRUGS (2)
  1. SANDOSTATIN [Suspect]
     Active Substance: OCTREOTIDE ACETATE
     Indication: NEUROENDOCRINE TUMOUR
     Dosage: 100 UG, TEST DOSE
     Route: 058
     Dates: start: 20131206, end: 20131206
  2. SANDOSTATIN LAR DEPOT [Suspect]
     Active Substance: OCTREOTIDE ACETATE
     Indication: NEUROENDOCRINE TUMOUR
     Dosage: 30 MG, QMO (EVERY 4 WEEKS)
     Route: 030
     Dates: start: 20131223, end: 20160712

REACTIONS (11)
  - Malaise [Unknown]
  - Sciatica [Recovering/Resolving]
  - Dehydration [Unknown]
  - Blood pressure systolic increased [Unknown]
  - Death [Fatal]
  - Blood pressure diastolic decreased [Unknown]
  - Neutrophil count decreased [Unknown]
  - Metastasis [Unknown]
  - Heart rate decreased [Unknown]
  - Dementia [Unknown]
  - Malignant neoplasm progression [Unknown]

NARRATIVE: CASE EVENT DATE: 20131223
